FAERS Safety Report 23878547 (Version 1)
Quarter: 2024Q2

REPORT INFORMATION
  Report Type: Spontaneous
  Country: CA (occurrence: CA)
  Receive Date: 20240521
  Receipt Date: 20240521
  Transmission Date: 20240716
  Serious: Yes (Other)
  Sender: FDA-Public Use
  Company Number: CA-PFIZER INC-2019144681

PATIENT
  Age: 50 Year
  Sex: Female

DRUGS (28)
  1. XELJANZ [Suspect]
     Active Substance: TOFACITINIB CITRATE
     Indication: Psoriatic arthropathy
     Dosage: 5 MG, 2X/DAY
     Route: 048
     Dates: start: 20190311, end: 2019
  2. AMLODIPINE [Concomitant]
     Active Substance: AMLODIPINE BESYLATE
     Dosage: UNK
  3. AMLODIPINE BESYLATE [Concomitant]
     Active Substance: AMLODIPINE BESYLATE
     Dosage: 2.5 MG, DAILY
     Route: 048
  4. ACTONEL [Concomitant]
     Active Substance: RISEDRONATE SODIUM
     Dosage: 35 MG, WEEKLY
     Route: 048
  5. AMITRIPTYLINE [Concomitant]
     Active Substance: AMITRIPTYLINE
     Dosage: UNK
  6. BUTRANS [Concomitant]
     Active Substance: BUPRENORPHINE
     Dosage: 20 MCG/HR
     Route: 062
  7. CHOLECALCIFEROL [Concomitant]
     Active Substance: CHOLECALCIFEROL
     Dosage: 3 DROP, DAILY
     Route: 048
  8. CHOLECALCIFEROL [Concomitant]
     Active Substance: CHOLECALCIFEROL
     Dosage: 1000 UI TABS, 2000 UI
     Route: 048
  9. CALCIUM [Concomitant]
     Active Substance: CALCIUM
     Dosage: 500 MG, 1X/DAY
     Route: 048
  10. CESAMET [Concomitant]
     Active Substance: NABILONE
     Dosage: 0.5 MG, AS DIRECTED
     Route: 048
  11. DEXILANT [Concomitant]
     Active Substance: DEXLANSOPRAZOLE
     Dosage: 30 MG, DAILY
     Route: 048
  12. FOLIC ACID [Concomitant]
     Active Substance: FOLIC ACID
     Dosage: 5 MG, DAILY (EXCEPT FOR DAY OF MTX AND LEUCOVORIN)
     Route: 048
  13. GABAPENTIN [Concomitant]
     Active Substance: GABAPENTIN
     Dosage: 400 MG, DAILY (100 MG AM, 100 MG LUNCH AND 200 MG HS)
     Route: 048
  14. HYDROXYCHLOROQUINE [Concomitant]
     Active Substance: HYDROXYCHLOROQUINE
     Dosage: UNK
  15. LEUCOVORIN CALCIUM [Concomitant]
     Active Substance: LEUCOVORIN CALCIUM
     Dosage: 5 MG, WEEKLY (DAY AFTER MTX)
     Route: 048
  16. METHOTREXATE SODIUM [Concomitant]
     Active Substance: METHOTREXATE SODIUM
     Dosage: 25 MG, WEEKLY
  17. METHOTREXATE [Concomitant]
     Active Substance: METHOTREXATE
     Dosage: 25 MG
  18. NORTRIPTYLINE [Concomitant]
     Active Substance: NORTRIPTYLINE
     Dosage: 10 MG, DAILY HS
     Route: 048
  19. PREMARIN [Concomitant]
     Active Substance: ESTROGENS, CONJUGATED
     Dosage: 0.625 MG (AS DIRECTED)
     Route: 048
  20. PREDNISONE [Concomitant]
     Active Substance: PREDNISONE
     Dosage: 5 MG, 5 MG TAB AND 1 MG TAB AS DIRECTED, FREQUENCY UNKNOWN
     Route: 048
  21. PLAQUENIL [Concomitant]
     Active Substance: HYDROXYCHLOROQUINE SULFATE
     Dosage: 200 MG, DAILY (1 1/2 TAB (300 MG))
     Route: 048
  22. RESTASIS [Concomitant]
     Active Substance: CYCLOSPORINE
     Dosage: UNK
     Route: 031
  23. SALONPAS TOPICAL [Concomitant]
     Dosage: UNK (GEL PATCH) AS DIRECTED
     Route: 061
  24. SECUKINUMAB [Concomitant]
     Active Substance: SECUKINUMAB
     Dosage: UNK
  25. TOPIRAMATE [Concomitant]
     Active Substance: TOPIRAMATE
     Dosage: 75 MG, DAILY
     Route: 048
  26. TRIONIC [Concomitant]
     Dosage: UNK, (WALKER TRIONIC)
  27. XYLITOL [Concomitant]
     Active Substance: XYLITOL
     Dosage: UNK UNK, 1X/DAY
     Route: 048
  28. ZOPICLONE [Concomitant]
     Active Substance: ZOPICLONE
     Dosage: 7.5 MG, AS DIRECTED
     Route: 048

REACTIONS (1)
  - Spinal operation [Unknown]
